FAERS Safety Report 9912231 (Version 2)
Quarter: 2016Q2

REPORT INFORMATION
  Report Type: Report from Study
  Country: US (occurrence: US)
  Receive Date: 20140220
  Receipt Date: 20160406
  Transmission Date: 20160815
  Serious: Yes (Other)
  Sender: FDA-Public Use
  Company Number: US-ROCHE-1232367

PATIENT
  Sex: Female

DRUGS (7)
  1. LIDOCAINE. [Concomitant]
     Active Substance: LIDOCAINE
     Route: 065
  2. AVASTIN [Suspect]
     Active Substance: BEVACIZUMAB
     Indication: NEOVASCULAR AGE-RELATED MACULAR DEGENERATION
     Route: 050
  3. BETADINE [Concomitant]
     Active Substance: POVIDONE-IODINE
  4. EQUATE VISION FORMULA WITH LUTEIN [Concomitant]
  5. OFLOXACIN. [Concomitant]
     Active Substance: OFLOXACIN
  6. LUCENTIS [Suspect]
     Active Substance: RANIBIZUMAB
     Indication: NEOVASCULAR AGE-RELATED MACULAR DEGENERATION
     Dosage: MOST RECENT DOSE ON:16/MAY/2013
     Route: 050
     Dates: end: 20080714
  7. PROPARACAINE [Concomitant]
     Active Substance: PROPARACAINE

REACTIONS (6)
  - Macular oedema [Not Recovered/Not Resolved]
  - Hypoacusis [Unknown]
  - Drug ineffective [Unknown]
  - Nasopharyngitis [Unknown]
  - Visual impairment [Unknown]
  - Cutis laxa [Unknown]
